FAERS Safety Report 13956416 (Version 2)
Quarter: 2017Q4

REPORT INFORMATION
  Report Type: Report from Study
  Country: None (occurrence: ES)
  Receive Date: 20170911
  Receipt Date: 20171013
  Transmission Date: 20180320
  Serious: Yes (Other)
  Sender: FDA-Public Use
  Company Number: ES-ABBVIE-17P-144-1855211-00

PATIENT
  Sex: Female

DRUGS (21)
  1. AZATHIOPRINE. [Suspect]
     Active Substance: AZATHIOPRINE
     Route: 048
     Dates: start: 20150119, end: 20160715
  2. IDEOS UNIDIA [Concomitant]
     Active Substance: CALCIUM CARBONATE\CHOLECALCIFEROL
     Indication: OSTEOPOROSIS PROPHYLAXIS
     Dosage: 1000MG/880UI
     Route: 048
     Dates: start: 20140217
  3. IDEOS UNIDIA [Concomitant]
     Active Substance: CALCIUM CARBONATE\CHOLECALCIFEROL
     Indication: STEROID THERAPY
  4. HUMIRA [Suspect]
     Active Substance: ADALIMUMAB
     Route: 058
     Dates: start: 20150121, end: 20170510
  5. INFLIXIMAB [Concomitant]
     Active Substance: INFLIXIMAB
     Indication: COLITIS ULCERATIVE
     Route: 040
     Dates: start: 20170616, end: 20170912
  6. PENTASA [Concomitant]
     Active Substance: MESALAMINE
     Indication: COLITIS ULCERATIVE
     Route: 048
     Dates: start: 20110701, end: 20140310
  7. SALOFALK [Concomitant]
     Active Substance: MESALAMINE
     Indication: COLITIS ULCERATIVE
     Route: 054
     Dates: start: 20140909
  8. MAGNESIO [Concomitant]
     Route: 048
     Dates: start: 20170705
  9. AZATHIOPRINE. [Suspect]
     Active Substance: AZATHIOPRINE
     Route: 048
     Dates: start: 20150716
  10. TARDYFERON [Concomitant]
     Active Substance: FERROUS SULFATE
     Indication: BLOOD IRON DECREASED
     Route: 048
     Dates: start: 20140909
  11. SILFASALAZINA [Concomitant]
     Indication: COLITIS ULCERATIVE
     Route: 048
     Dates: start: 20170116
  12. MAGNESIO [Concomitant]
     Indication: PREGNANCY
     Route: 048
     Dates: start: 20170612, end: 20170705
  13. ACIDO FOLICO/CIANOCOBALAMINA [Concomitant]
     Indication: PREGNANCY
     Route: 048
  14. DEZACOR [Concomitant]
     Active Substance: DEFLAZACORT
     Indication: COLITIS ULCERATIVE
     Route: 048
     Dates: start: 20130906
  15. OMEPRAZOL [Concomitant]
     Active Substance: OMEPRAZOLE
     Indication: GASTRIC DISORDER
  16. HUMIRA [Suspect]
     Active Substance: ADALIMUMAB
     Indication: COLITIS ULCERATIVE
     Route: 058
     Dates: start: 20140730
  17. AZATHIOPRINE. [Suspect]
     Active Substance: AZATHIOPRINE
     Indication: COLITIS ULCERATIVE
     Route: 048
     Dates: start: 20140108
  18. PENTASA [Concomitant]
     Active Substance: MESALAMINE
     Route: 048
     Dates: start: 20120124, end: 20170116
  19. CLIPPER [Concomitant]
     Active Substance: BECLOMETHASONE DIPROPIONATE
     Indication: COLITIS ULCERATIVE
     Route: 048
     Dates: start: 20130521
  20. OMEPRAZOL [Concomitant]
     Active Substance: OMEPRAZOLE
     Indication: PROPHYLAXIS
     Route: 048
     Dates: start: 20140217
  21. YODOCEFOL [Concomitant]
     Active Substance: CYANOCOBALAMIN\FOLIC ACID\POTASSIUM IODIDE
     Indication: PREGNANCY
     Dosage: 200/400/2 MCG
     Route: 048
     Dates: start: 20170118

REACTIONS (4)
  - Foetal growth restriction [Unknown]
  - Live birth [Unknown]
  - High risk pregnancy [Unknown]
  - Exposure during pregnancy [Unknown]
